FAERS Safety Report 4604402-X (Version None)
Quarter: 2005Q1

REPORT INFORMATION
  Report Type: 
  Country: None (occurrence: None)
  Receive Date: 20050309
  Receipt Date: 20050309
  Transmission Date: 20050727
  Serious: No
  Sender: FDA-Public Use
  Company Number: None

PATIENT
  Sex: Male
  Weight: 72.5755 kg

DRUGS (2)
  1. AIRBORNE KNIGHT-MCDOWELL LABS [Suspect]
     Indication: NASOPHARYNGITIS
     Dosage: 1 TABLET W/ WATHER DRINK ORALLY [3 DOSES]
     Route: 048
  2. AIRBORNE KNIGHT-MCDOWELL LABS [Suspect]
     Indication: PROPHYLAXIS
     Dosage: 1 TABLET W/ WATHER DRINK ORALLY [3 DOSES]
     Route: 048

REACTIONS (1)
  - INTERNATIONAL NORMALISED RATIO DECREASED [None]
